FAERS Safety Report 26082821 (Version 1)
Quarter: 2025Q4

REPORT INFORMATION
  Report Type: Spontaneous
  Country: US (occurrence: None)
  Receive Date: 20251123
  Receipt Date: 20251123
  Transmission Date: 20260118
  Serious: No
  Sender: FDA-CTU
  Company Number: None

PATIENT
  Age: 33 Year
  Sex: Female

DRUGS (1)
  1. STEM CELL, EXOSOME, OR GROWTH FACTOR DERIVED UNAPPROVED PRODUCTS [Suspect]
     Active Substance: STEM CELL, EXOSOME, OR GROWTH FACTOR DERIVED UNAPPROVED PRODUCTS
     Indication: Periorbital disorder
     Dates: start: 20250820

REACTIONS (6)
  - Incorrect route of product administration [None]
  - Orbital cyst [None]
  - Swelling face [None]
  - Contusion [None]
  - Skin mass [None]
  - Periorbital disorder [None]

NARRATIVE: CASE EVENT DATE: 20250820
